FAERS Safety Report 5025248-7 (Version None)
Quarter: 2006Q2

REPORT INFORMATION
  Report Type: 
  Country: None (occurrence: None)
  Receive Date: 20060426
  Receipt Date: 20060131
  Transmission Date: 20061013
  Serious: Yes (Other)
  Sender: FDA-Public Use
  Company Number: 2006016707

PATIENT
  Age: 73 Year
  Sex: Male
  Weight: 70.3075 kg

DRUGS (3)
  1. LYRICA [Suspect]
     Indication: POST HERPETIC NEURALGIA
     Dosage: 300 MG (75 MG,2 IN 2 D)
     Dates: start: 20051228
  2. NORVASC [Concomitant]
  3. PROSCAR [Concomitant]

REACTIONS (4)
  - BALANCE DISORDER [None]
  - DRUG INEFFECTIVE [None]
  - FEELING DRUNK [None]
  - JOINT SWELLING [None]
